FAERS Safety Report 7338622-0 (Version None)
Quarter: 2011Q1

REPORT INFORMATION
  Report Type: 
  Country: None (occurrence: None)
  Receive Date: 20110308
  Receipt Date: 20110225
  Transmission Date: 20110831
  Serious: Yes (Hospitalization)
  Sender: FDA-Public Use
  Company Number: ES-JNJFOC-20110300377

PATIENT
  Age: 61 Year
  Sex: Female
  Weight: 104 kg

DRUGS (6)
  1. ALENDRONATE [Concomitant]
     Indication: OSTEOPOROSIS
     Route: 048
  2. GOLIMUMAB [Suspect]
     Indication: RHEUMATOID ARTHRITIS
     Dosage: DOSE IN SERIES: 6
     Route: 058
  3. CALCIUM WITH VITAMIN D [Concomitant]
     Indication: OSTEOPOROSIS
     Dosage: '1000-800 MG-IU^
     Route: 048
  4. FUROSEMIDE/TRIAMTERENE [Concomitant]
     Dosage: ^28/77.6 MG^
     Route: 048
  5. METHOTREXATE [Suspect]
     Indication: RHEUMATOID ARTHRITIS
     Route: 058
  6. FOLIC ACID [Concomitant]
     Indication: RHEUMATOID ARTHRITIS
     Route: 048

REACTIONS (1)
  - PERITONSILLAR ABSCESS [None]
